FAERS Safety Report 6961813-5 (Version None)
Quarter: 2010Q3

REPORT INFORMATION
  Report Type: 
  Country: None (occurrence: None)
  Receive Date: 20100901
  Receipt Date: 20100826
  Transmission Date: 20110219
  Serious: Yes (Hospitalization, Other)
  Sender: FDA-Public Use
  Company Number: US-AMGEN-KDC431040

PATIENT
  Age: 68 Year
  Sex: Female
  Weight: 100.6 kg

DRUGS (21)
  1. PANITUMUMAB [Suspect]
     Indication: OESOPHAGEAL CARCINOMA
     Route: 042
     Dates: start: 20100225, end: 20100422
  2. DOCETAXEL [Suspect]
     Route: 042
     Dates: start: 20100225, end: 20100422
  3. CISPLATIN [Suspect]
     Route: 042
     Dates: start: 20100225, end: 20100422
  4. SYNTHROID [Concomitant]
  5. VERAPAMIL [Concomitant]
  6. HYDROCHLOROTHIAZIDE [Concomitant]
  7. LIPITOR [Concomitant]
  8. CELEBREX [Concomitant]
  9. VITAMIN E [Concomitant]
  10. CENTRUM SILVER [Concomitant]
  11. CALCIUM [Concomitant]
  12. LEUCOVORIN CALCIUM [Concomitant]
  13. VITAMIN B-12 [Concomitant]
  14. VITAMIN B6 [Concomitant]
  15. FEOSOL [Concomitant]
  16. ACETAMINOPHEN AND HYDROCODONE BITARTRATE [Concomitant]
  17. MIDRIN [Concomitant]
  18. PRILOSEC [Concomitant]
  19. SINUTAB [Concomitant]
  20. MINOCYCLINE HCL [Concomitant]
  21. RADIATION THERAPY [Concomitant]

REACTIONS (1)
  - LYMPHOPENIA [None]
